FAERS Safety Report 9500462 (Version 2)
Quarter: 2014Q1

REPORT INFORMATION
  Report Type: Spontaneous
  Country: US (occurrence: US)
  Receive Date: 20130905
  Receipt Date: 20140210
  Transmission Date: 20141002
  Serious: Yes (Hospitalization, Other)
  Sender: FDA-Public Use
  Company Number: US-BAYER-2013-106539

PATIENT
  Age: 39 Year
  Sex: Female
  Weight: 29.89 kg

DRUGS (7)
  1. YAZ [Suspect]
     Indication: CONTRACEPTION
  2. YAZ [Suspect]
     Indication: PREMENSTRUAL SYNDROME
  3. YASMIN [Suspect]
  4. ACETAMINOPHEN W/CODEINE [Concomitant]
     Dosage: TAKE ONE OR TWO TS PO Q (TABLETS BY MOUTH EVERY) FOUR HOURS PRN
  5. COLACE [Concomitant]
  6. NORCO [Concomitant]
     Indication: PAIN
  7. MOTRIN [Concomitant]

REACTIONS (3)
  - Pulmonary embolism [Recovered/Resolved]
  - Deep vein thrombosis [Recovered/Resolved]
  - Phlebitis [Recovered/Resolved]
